FAERS Safety Report 6894911-5 (Version None)
Quarter: 2010Q3

REPORT INFORMATION
  Report Type: 
  Country: None (occurrence: None)
  Receive Date: 20100730
  Receipt Date: 20100730
  Transmission Date: 20110219
  Serious: Yes (Other)
  Sender: FDA-Public Use
  Company Number: None

PATIENT
  Age: 61 Year
  Sex: Female

DRUGS (2)
  1. LITHIUM CARBONATE [Suspect]
     Indication: BIPOLAR DISORDER
     Dosage: 750 MG PO HS (1 DOSE)
     Route: 048
     Dates: start: 20100708
  2. LITHIUM CARBONATE [Suspect]

REACTIONS (1)
  - TREMOR [None]
